FAERS Safety Report 21602818 (Version 1)
Quarter: 2022Q4

REPORT INFORMATION
  Report Type: Spontaneous
  Country: US (occurrence: None)
  Receive Date: 20221115
  Receipt Date: 20221115
  Transmission Date: 20230113
  Serious: Yes (Other)
  Sender: FDA-Public Use
  Company Number: None

PATIENT
  Age: 62 Year
  Sex: Male
  Weight: 110.7 kg

DRUGS (8)
  1. MOUNJARO [Suspect]
     Active Substance: TIRZEPATIDE
     Indication: Type 2 diabetes mellitus
     Dosage: FREQUENCY : WEEKLY;?
     Route: 058
     Dates: start: 20221104, end: 20221112
  2. ALLOPURINOL [Concomitant]
     Active Substance: ALLOPURINOL
     Dates: start: 20080509
  3. ATORVASTATIN [Concomitant]
     Active Substance: ATORVASTATIN
     Dates: start: 20151215
  4. CIALIS [Concomitant]
     Active Substance: TADALAFIL
     Dates: start: 20170728
  5. FARXIGA [Concomitant]
     Active Substance: DAPAGLIFLOZIN PROPANEDIOL
  6. Metformin XR 500mg [Concomitant]
     Dates: start: 20020828
  7. Olmesartan-Hydrochlorothiazide 40mg-25mg [Concomitant]
     Dates: start: 20100830
  8. OMEPRAZOLE [Concomitant]
     Active Substance: OMEPRAZOLE
     Dates: start: 20130101

REACTIONS (2)
  - Anaphylactic reaction [None]
  - Bronchospasm [None]

NARRATIVE: CASE EVENT DATE: 20221112
